FAERS Safety Report 6862404-7 (Version None)
Quarter: 2010Q3

REPORT INFORMATION
  Report Type: 
  Country: None (occurrence: None)
  Receive Date: 20100719
  Receipt Date: 20100705
  Transmission Date: 20110219
  Serious: Yes (Other)
  Sender: FDA-Public Use
  Company Number: 7008850

PATIENT
  Age: 25 Year
  Sex: Female
  Weight: 85 kg

DRUGS (5)
  1. REBIF [Suspect]
     Indication: MULTIPLE SCLEROSIS
     Dosage: 8.8; 22, 3 IN 1 WK; 44, 3 IN 1  WK,22, 3 IN 1WK
     Dates: start: 20080601, end: 20080701
  2. REBIF [Suspect]
     Indication: MULTIPLE SCLEROSIS
     Dosage: 8.8; 22, 3 IN 1 WK; 44, 3 IN 1  WK,22, 3 IN 1WK
     Dates: start: 20080701, end: 20081001
  3. REBIF [Suspect]
     Indication: MULTIPLE SCLEROSIS
     Dosage: 8.8; 22, 3 IN 1 WK; 44, 3 IN 1  WK,22, 3 IN 1WK
     Dates: start: 20081001, end: 20100601
  4. REBIF [Suspect]
     Indication: MULTIPLE SCLEROSIS
     Dosage: 8.8; 22, 3 IN 1 WK; 44, 3 IN 1  WK,22, 3 IN 1WK
     Dates: start: 20100601, end: 20100622
  5. MIRTAZAPINE [Concomitant]

REACTIONS (20)
  - ALANINE AMINOTRANSFERASE INCREASED [None]
  - ASPARTATE AMINOTRANSFERASE INCREASED [None]
  - BACK PAIN [None]
  - BLOOD ALKALINE PHOSPHATASE INCREASED [None]
  - DEPRESSION [None]
  - DYSPHAGIA [None]
  - ECZEMA [None]
  - ELECTROCARDIOGRAM RR INTERVAL PROLONGED [None]
  - GAMMA-GLUTAMYLTRANSFERASE INCREASED [None]
  - HEPATOMEGALY [None]
  - INFLUENZA [None]
  - INJECTION SITE ECZEMA [None]
  - INJECTION SITE VASCULITIS [None]
  - LIVER DISORDER [None]
  - ORAL HERPES [None]
  - PHOTOSENSITIVITY REACTION [None]
  - SLEEP DISORDER [None]
  - TRANSAMINASES INCREASED [None]
  - VERTIGO [None]
  - WEIGHT INCREASED [None]
